FAERS Safety Report 10208663 (Version 2)
Quarter: 2014Q2

REPORT INFORMATION
  Report Type: Spontaneous
  Country: US (occurrence: US)
  Receive Date: 20140530
  Receipt Date: 20140530
  Transmission Date: 20141212
  Serious: Yes (Hospitalization, Other)
  Sender: FDA-Public Use
  Company Number: US-ELI_LILLY_AND_COMPANY-US201309008073

PATIENT
  Age: 84 Year
  Sex: Female

DRUGS (5)
  1. ALIMTA [Suspect]
     Indication: LUNG CANCER METASTATIC
     Dosage: UNK
     Route: 065
     Dates: start: 201310
  2. FOLIC ACID [Concomitant]
  3. VITAMIN B12                        /00056201/ [Concomitant]
  4. SYNTHROID [Concomitant]
  5. OXYGEN [Concomitant]

REACTIONS (11)
  - Pneumonia [Unknown]
  - Dyspnoea [Unknown]
  - Rash [Not Recovered/Not Resolved]
  - Dysstasia [Unknown]
  - Pain [Unknown]
  - Peripheral swelling [Recovered/Resolved]
  - Asthenia [Unknown]
  - Memory impairment [Unknown]
  - Eye swelling [Unknown]
  - Eye discharge [Unknown]
  - Alopecia [Unknown]
